FAERS Safety Report 10872650 (Version 2)
Quarter: 2015Q1

REPORT INFORMATION
  Report Type: Spontaneous
  Country: FR (occurrence: FR)
  Receive Date: 20150227
  Receipt Date: 20150319
  Transmission Date: 20150721
  Serious: Yes (Other)
  Sender: FDA-Public Use
  Company Number: FR-ASTRAZENECA-2015SE17037

PATIENT
  Age: 42 Year
  Sex: Female

DRUGS (1)
  1. CRESTOR [Suspect]
     Active Substance: ROSUVASTATIN CALCIUM
     Route: 048
     Dates: start: 20140104, end: 20141115

REACTIONS (4)
  - Nausea [Unknown]
  - Vertigo [Recovered/Resolved]
  - Bradycardia [Unknown]
  - Malaise [Unknown]

NARRATIVE: CASE EVENT DATE: 201402
